FAERS Safety Report 9823263 (Version 2)
Quarter: 2014Q3

REPORT INFORMATION
  Report Type: Spontaneous
  Country: US (occurrence: US)
  Receive Date: 20140116
  Receipt Date: 20140819
  Transmission Date: 20150326
  Serious: Yes (Hospitalization, Other)
  Sender: FDA-Public Use
  Company Number: US-009507513-1401USA006983

PATIENT
  Sex: Female
  Weight: 109.98 kg

DRUGS (1)
  1. NUVARING [Suspect]
     Active Substance: ETHINYL ESTRADIOL\ETONOGESTREL
     Indication: OVARIAN CYST
     Dosage: UNK
     Route: 067
     Dates: start: 20120708, end: 20121008

REACTIONS (8)
  - Aphasia [Recovered/Resolved]
  - Facial paresis [Recovering/Resolving]
  - C-reactive protein increased [Unknown]
  - Cerebrovascular accident [Unknown]
  - Muscular weakness [Recovering/Resolving]
  - Fibrin D dimer increased [Unknown]
  - Headache [Unknown]
  - Off label use [Unknown]

NARRATIVE: CASE EVENT DATE: 20121008
